FAERS Safety Report 23863979 (Version 1)
Quarter: 2024Q2

REPORT INFORMATION
  Report Type: Spontaneous
  Country: US (occurrence: None)
  Receive Date: 20240516
  Receipt Date: 20240516
  Transmission Date: 20240716
  Serious: No
  Sender: FDA-Public Use
  Company Number: None

PATIENT
  Age: 75 Year
  Sex: Female
  Weight: 52.1 kg

DRUGS (2)
  1. TAVNEOS [Suspect]
     Active Substance: AVACOPAN
     Indication: Microscopic polyangiitis
     Dosage: OTHER QUANTITY : 180 CAPSULES;?FREQUENCY : TWICE A DAY;?
     Route: 048
     Dates: start: 20240424
  2. TAVNEOS [Suspect]
     Active Substance: AVACOPAN
     Indication: Antineutrophil cytoplasmic antibody positive

REACTIONS (4)
  - Nail disorder [None]
  - Dialysis [None]
  - Renal impairment [None]
  - Malnutrition [None]
